FAERS Safety Report 4520242-4 (Version None)
Quarter: 2004Q4

REPORT INFORMATION
  Report Type: 
  Country: None (occurrence: None)
  Receive Date: 20041025
  Receipt Date: 20040818
  Transmission Date: 20050328
  Serious: Yes (Hospitalization, Other)
  Sender: FDA-Public Use
  Company Number: USA040567581

PATIENT
  Age: 30 Year
  Sex: Male

DRUGS (1)
  1. SYMBYAX [Suspect]
     Indication: BIPOLAR DISORDER
     Dates: start: 20040210

REACTIONS (1)
  - PULMONARY EMBOLISM [None]
